FAERS Safety Report 8724785 (Version 4)
Quarter: 2012Q4

REPORT INFORMATION
  Report Type: 
  Country: US (occurrence: US)
  Receive Date: 20120815
  Receipt Date: 20121016
  Transmission Date: 20130627
  Serious: Yes (Death, Other)
  Sender: FDA-Public Use
  Company Number: US-ALEXION PHARMACEUTICALS INC.-A201201502

PATIENT
  Age: 18 Year
  Sex: Female
  Weight: 61.6 kg

DRUGS (14)
  1. SOLIRIS 300MG [Suspect]
     Indication: HAEMOLYTIC URAEMIC SYNDROME
     Dosage: 900 mg, UNK
     Route: 042
     Dates: start: 20120806, end: 20120806
  2. FLUCONAZOLE [Concomitant]
  3. GANCICLOVIR [Concomitant]
  4. CELLCEPT [Concomitant]
  5. VANCOMYCIN [Concomitant]
     Dosage: UNK
     Dates: end: 20120802
  6. MERREM [Concomitant]
     Indication: ANTIBIOTIC PROPHYLAXIS
     Dosage: 500 mg, bid
     Route: 042
     Dates: start: 20120802, end: 20120807
  7. FLAGYL [Concomitant]
  8. FENTANYL [Concomitant]
     Dosage: 20 ?g/ml, UNK
     Route: 042
  9. BENADRYL [Concomitant]
  10. TYLENOL [Concomitant]
     Dosage: 160 mg/5ml, UNK
  11. DEMEROL [Concomitant]
     Dosage: 40 mg, UNK
     Route: 030
  12. DILAUDID [Concomitant]
     Dosage: 2 mg, UNK
     Route: 030
  13. VERSED [Concomitant]
     Dosage: 10 mg/2ml, UNK
  14. MORPHINE [Concomitant]
     Dosage: 4 mg, UNK
     Route: 030

REACTIONS (3)
  - Multi-organ failure [Fatal]
  - Hodgkin^s disease nodular sclerosis recurrent [Fatal]
  - Convulsion [Recovered/Resolved]
